FAERS Safety Report 10101994 (Version 5)
Quarter: 2015Q2

REPORT INFORMATION
  Report Type: Spontaneous
  Country: US (occurrence: US)
  Receive Date: 20140424
  Receipt Date: 20150408
  Transmission Date: 20150821
  Serious: Yes (Death, Hospitalization, Other)
  Sender: FDA-Public Use
  Company Number: US-009507513-1404USA012651

PATIENT
  Sex: Male
  Weight: 104.31 kg

DRUGS (5)
  1. PROPRANOLOL HYDROCHLORIDE. [Concomitant]
     Active Substance: PROPRANOLOL HYDROCHLORIDE
     Indication: PRODUCT USED FOR UNKNOWN INDICATION
  2. LISINOPRIL. [Concomitant]
     Active Substance: LISINOPRIL
     Indication: PRODUCT USED FOR UNKNOWN INDICATION
     Dosage: 10 MG, QD
     Route: 048
  3. JANUMET [Suspect]
     Active Substance: METFORMIN HYDROCHLORIDE\SITAGLIPTIN PHOSPHATE
     Indication: TYPE 2 DIABETES MELLITUS
     Dosage: 50/500 MG, BID
     Route: 048
     Dates: start: 20110121, end: 20120502
  4. JANUMET [Suspect]
     Active Substance: METFORMIN HYDROCHLORIDE\SITAGLIPTIN PHOSPHATE
     Dosage: 50/1000 MG, BID
     Route: 048
     Dates: start: 20110317, end: 20120625
  5. MOTRIN [Concomitant]
     Active Substance: IBUPROFEN
     Indication: PRODUCT USED FOR UNKNOWN INDICATION

REACTIONS (18)
  - Pancreatectomy [Unknown]
  - Constipation [Unknown]
  - Arthralgia [Unknown]
  - Pancreatic carcinoma [Unknown]
  - Temporomandibular joint syndrome [Unknown]
  - Portal hypertension [Unknown]
  - Cardiac disorder [Unknown]
  - Hypercholesterolaemia [Unknown]
  - Haematuria [Unknown]
  - Back pain [Unknown]
  - Cardiogenic shock [Fatal]
  - Hepatic cirrhosis [Unknown]
  - Gallbladder enlargement [Unknown]
  - Chronic gastritis [Unknown]
  - Liver function test abnormal [Unknown]
  - Acute myocardial infarction [Fatal]
  - Tonsillectomy [Unknown]
  - Tremor [Unknown]

NARRATIVE: CASE EVENT DATE: 20120222
